FAERS Safety Report 22372577 (Version 1)
Quarter: 2023Q2

REPORT INFORMATION
  Report Type: Spontaneous
  Country: ES (occurrence: ES)
  Receive Date: 20230526
  Receipt Date: 20230526
  Transmission Date: 20230721
  Serious: Yes (Other)
  Sender: FDA-Public Use
  Company Number: ES-SUN PHARMACEUTICAL INDUSTRIES LTD-2023RR-390223

PATIENT
  Age: 48 Year
  Sex: Male

DRUGS (1)
  1. PANTOPRAZOLE SODIUM [Suspect]
     Active Substance: PANTOPRAZOLE SODIUM
     Indication: Gastrooesophageal reflux disease
     Dosage: 20 MILLIGRAM, DOSAGE FORM
     Route: 065
     Dates: start: 20191109, end: 20201130

REACTIONS (1)
  - Dizziness postural [Unknown]

NARRATIVE: CASE EVENT DATE: 20201109
